FAERS Safety Report 9867034 (Version 2)
Quarter: 2014Q1

REPORT INFORMATION
  Report Type: Spontaneous
  Country: US (occurrence: US)
  Receive Date: 20140204
  Receipt Date: 20140303
  Transmission Date: 20141002
  Serious: No
  Sender: FDA-Public Use
  Company Number: US-JNJFOC-20140109407

PATIENT
  Age: 24 Year
  Sex: Male
  Weight: 117.94 kg

DRUGS (2)
  1. INVEGA SUSTENNA [Suspect]
     Indication: ANXIETY
     Route: 030
     Dates: start: 20130118
  2. INVEGA SUSTENNA [Suspect]
     Indication: SCHIZOPHRENIA
     Route: 030
     Dates: start: 20130118

REACTIONS (2)
  - Breast discharge [Unknown]
  - Breast enlargement [Unknown]
